FAERS Safety Report 10146115 (Version 2)
Quarter: 2014Q2

REPORT INFORMATION
  Report Type: Spontaneous
  Country: IT (occurrence: IT)
  Receive Date: 20140501
  Receipt Date: 20140515
  Transmission Date: 20141212
  Serious: Yes (Other)
  Sender: FDA-Public Use
  Company Number: IT-TEVA-478415ISR

PATIENT
  Age: 86 Year
  Sex: Female

DRUGS (8)
  1. CEFTRIAXONE DISODIUM [Suspect]
     Indication: GENITAL ABSCESS
     Dosage: 2 GRAM DAILY;
     Route: 042
     Dates: start: 20131129, end: 20131208
  2. SINTROM - 4 MG COMPRESSE - NOVARTIS FARMA S.P.A. [Interacting]
     Indication: ATRIAL FIBRILLATION
     Dosage: 6 MG WEEKLY
     Route: 048
     Dates: start: 20090810, end: 20131209
  3. AUGMENTIN - 875 MG/125 MG POLVERE PER SOSPENSIONE ORALE [Interacting]
     Indication: GENITAL ABSCESS
     Dosage: 2 DOSAGE FORMS DAILY; 2 DF DAILY
     Route: 048
     Dates: start: 20131202, end: 20131210
  4. LASIX - 25 MG COMPRESSE [Concomitant]
     Indication: PRODUCT USED FOR UNKNOWN INDICATION
     Dosage: 75 MG
     Route: 048
  5. MICARDIS - 80 MG COMPRESSE [Concomitant]
     Indication: PRODUCT USED FOR UNKNOWN INDICATION
     Dosage: 80 MG
     Route: 048
  6. KANRENOL - 100 MG COMPRESSE [Concomitant]
     Indication: PRODUCT USED FOR UNKNOWN INDICATION
     Dosage: 100 MG
     Route: 048
  7. BISOPROLOL HEMIFUMARATE [Concomitant]
     Indication: PRODUCT USED FOR UNKNOWN INDICATION
     Dosage: 2.5 MG
     Route: 048
  8. METFORMIN HYDROCHLORIDE [Concomitant]
     Indication: PRODUCT USED FOR UNKNOWN INDICATION
     Dosage: 750 MG
     Route: 048

REACTIONS (2)
  - Drug interaction [Recovered/Resolved]
  - International normalised ratio increased [Recovered/Resolved]
